FAERS Safety Report 9295504 (Version 2)
Quarter: 2013Q2

REPORT INFORMATION
  Report Type: Spontaneous
  Country: US (occurrence: US)
  Receive Date: 20130517
  Receipt Date: 20130618
  Transmission Date: 20140414
  Serious: Yes (Congenital Anomaly, Other)
  Sender: FDA-Public Use
  Company Number: US-PFIZER INC-2013149412

PATIENT
  Sex: Female

DRUGS (6)
  1. ZOLOFT [Suspect]
     Indication: DEPRESSION
     Dosage: UNK
     Route: 064
     Dates: start: 2001, end: 2003
  2. PRENATAL VITAMINS [Concomitant]
     Dosage: UNK
     Route: 064
  3. MAXIDE [Concomitant]
     Dosage: UNK
     Route: 064
  4. TUMS [Concomitant]
     Dosage: UNK
     Route: 064
  5. BENADRYL [Concomitant]
     Dosage: UNK
     Route: 064
  6. AMOXICILLIN [Concomitant]
     Dosage: UNK
     Route: 064

REACTIONS (4)
  - Foetal exposure during pregnancy [Unknown]
  - Patent ductus arteriosus [Unknown]
  - Atrial septal defect [Unknown]
  - Premature baby [Unknown]
